FAERS Safety Report 4930826-7 (Version None)
Quarter: 2006Q1

REPORT INFORMATION
  Report Type: 
  Country: None (occurrence: None)
  Receive Date: 20060302
  Receipt Date: 20060220
  Transmission Date: 20060701
  Serious: Yes (Hospitalization, Other)
  Sender: FDA-Public Use
  Company Number: CA-ABBOTT-06P-028-0325762-00

PATIENT
  Age: 54 Year
  Sex: Male

DRUGS (1)
  1. MAVIK [Suspect]
     Indication: HYPERTENSION
     Dates: start: 20051114, end: 20051213

REACTIONS (2)
  - RENAL FAILURE ACUTE [None]
  - TACHYCARDIA [None]
